FAERS Safety Report 22086137 (Version 2)
Quarter: 2024Q2

REPORT INFORMATION
  Report Type: Spontaneous
  Country: US (occurrence: US)
  Receive Date: 20230310
  Receipt Date: 20240411
  Transmission Date: 20240716
  Serious: No
  Sender: FDA-Public Use
  Company Number: US-GALDERMA-US2023002839

PATIENT

DRUGS (4)
  1. PROACTIV MD ADAPALENE ACNE TREATMENT [Suspect]
     Active Substance: ADAPALENE
     Indication: Erythema
     Dosage: 1 DOSAGE FORM, QD
     Route: 061
     Dates: start: 2022
  2. PROACTIV CLEAR SKIN SPF 30 [Concomitant]
     Active Substance: AVOBENZONE\OCTISALATE\OCTOCRYLENE
     Indication: Erythema
     Dosage: 1 DOSAGE FORM, BID
     Route: 061
     Dates: start: 2022
  3. Proactiv MD Ultra Gentle Cleanser [Concomitant]
     Indication: Erythema
     Dosage: 1 DOSAGE FORM, BID
     Route: 061
  4. Proactiv MD Ultra Hydrating Moisturizer [Concomitant]
     Indication: Erythema
     Dosage: 1 DOSAGE FORM, BID
     Route: 061
     Dates: start: 2022

REACTIONS (4)
  - Rash [Unknown]
  - Skin irritation [Unknown]
  - Skin burning sensation [Unknown]
  - Drug ineffective for unapproved indication [Recovered/Resolved]

NARRATIVE: CASE EVENT DATE: 20220101
